FAERS Safety Report 14631180 (Version 1)
Quarter: 2018Q1

REPORT INFORMATION
  Report Type: Spontaneous
  Country: US (occurrence: US)
  Receive Date: 20180313
  Receipt Date: 20180313
  Transmission Date: 20180509
  Serious: Yes (Other)
  Sender: FDA-Public Use
  Company Number: US-MYLANLABS-2018M1015287

PATIENT
  Age: 8 Year
  Sex: Female

DRUGS (1)
  1. PAMIDRONATE [Suspect]
     Active Substance: PAMIDRONATE DISODIUM
     Indication: OSTEOGENESIS IMPERFECTA
     Dosage: RECEIVED 11 CYCLES
     Route: 065

REACTIONS (3)
  - Femur fracture [Unknown]
  - Multiple fractures [Unknown]
  - Bone disorder [Unknown]
